FAERS Safety Report 20796255 (Version 1)
Quarter: 2022Q2

REPORT INFORMATION
  Report Type: Spontaneous
  Country: HR (occurrence: HR)
  Receive Date: 20220506
  Receipt Date: 20220506
  Transmission Date: 20220721
  Serious: Yes (Other)
  Sender: FDA-Public Use
  Company Number: None

PATIENT
  Sex: Female

DRUGS (3)
  1. ISOPTIN [Suspect]
     Active Substance: VERAPAMIL HYDROCHLORIDE
     Dosage: 5TBL,UNIT DOSE 1200MG,FREQUENCY TIME 1 DAYS,ADR IS ADEQUATLY LABELLED: YES
     Route: 048
  2. ALPRAZOLAM [Suspect]
     Active Substance: ALPRAZOLAM
     Dosage: 5TBL,ADR IS ADEQUATLY LABELLED: SOMNOLENCE,DYSTONIA, ADR IS NOT ADEQUATLY LABELLED: HYPOTENSION, BRA
     Route: 048
  3. FEVARIN [Suspect]
     Active Substance: FLUVOXAMINE MALEATE
     Dosage: 5TBL, UNIT DOSE 500MG,FREQUENCY TIME 1 DAYS,ADR IS ADEQUATLY LABELLED: YES
     Route: 048

REACTIONS (6)
  - Bradycardia [Unknown]
  - Dystonia [Unknown]
  - Somnolence [Unknown]
  - Intentional overdose [Unknown]
  - Suicide attempt [Unknown]
  - Hypotension [Unknown]

NARRATIVE: CASE EVENT DATE: 20220317
